FAERS Safety Report 12266486 (Version 2)
Quarter: 2017Q1

REPORT INFORMATION
  Report Type: Spontaneous
  Country: US (occurrence: US)
  Receive Date: 20160414
  Receipt Date: 20170106
  Transmission Date: 20170428
  Serious: Yes (Hospitalization)
  Sender: FDA-Public Use
  Company Number: US-ASTRAZENECA-2016SE38137

PATIENT
  Sex: Female

DRUGS (1)
  1. TUDORZA PRESSAIR [Suspect]
     Active Substance: ACLIDINIUM BROMIDE
     Route: 055
     Dates: start: 2014

REACTIONS (6)
  - Pneumonia [Unknown]
  - Drug dose omission [Unknown]
  - Dyspnoea [Unknown]
  - Drug ineffective [Unknown]
  - Circumstance or information capable of leading to medication error [Unknown]
  - Device failure [Unknown]
